FAERS Safety Report 9059595 (Version 1)
Quarter: 2013Q1

REPORT INFORMATION
  Report Type: Spontaneous
  Country: US (occurrence: US)
  Receive Date: 20130212
  Receipt Date: 20130212
  Transmission Date: 20140127
  Serious: No
  Sender: FDA-Public Use
  Company Number: US-B.I. PHARMACEUTICALS,INC./RIDGEFIELD-2013-BI-03801PF

PATIENT
  Age: 75 Year
  Sex: 0

DRUGS (2)
  1. SPIRIVA [Suspect]
  2. DALIRESP [Suspect]
     Dosage: 500 MCG

REACTIONS (1)
  - Adverse drug reaction [Unknown]
